FAERS Safety Report 9512081 (Version 1)
Quarter: 2013Q1

REPORT INFORMATION
  Report Type: Spontaneous
  Country: US (occurrence: None)
  Receive Date: 20130305
  Receipt Date: 20130305
  Transmission Date: 20140127
  Serious: Yes (Other)
  Sender: FDA-Public Use
  Company Number: 163-21880-11123723

PATIENT
  Age: 93 Year
  Sex: Male
  Weight: 96.62 kg

DRUGS (8)
  1. REVLIMID [Suspect]
     Indication: MYELODYSPLASTIC SYNDROME
     Dosage: QD FOR 28 DAYS
     Route: 048
     Dates: start: 201112, end: 201112
  2. AMBIEN (ZOLPIDEM TARTRATE) (UNKNOWN) [Concomitant]
  3. CENTRUM (CENTRUM) (UNKNOWN) [Concomitant]
  4. DIGOXIN (DIGOXIN) (UNKNOWN) (DIGOXIN) [Concomitant]
  5. LASIX (FUROESEMIDE) (UNKNOWN) [Concomitant]
  6. MIRALAX (MACROGOL) (UNKNOWN) [Concomitant]
  7. OMEGA 3 (FISH OIL) (UNKNOWN) [Concomitant]
  8. PROTONIX (PANTOPRAZOLE SODIUM) (UNKNOWN) [Concomitant]

REACTIONS (2)
  - Red blood cell count decreased [None]
  - Platelet count decreased [None]
